FAERS Safety Report 4868771-8 (Version None)
Quarter: 2005Q4

REPORT INFORMATION
  Report Type: 
  Country: None (occurrence: None)
  Receive Date: 20051223
  Receipt Date: 20051215
  Transmission Date: 20060501
  Serious: Yes (Disabling)
  Sender: FDA-Public Use
  Company Number: 2005EU002843

PATIENT
  Age: 54 Year
  Sex: Female

DRUGS (6)
  1. FK506 (TACROLIMUS CAPSULES) [Suspect]
     Indication: RENAL AND PANCREAS TRANSPLANT
     Dosage: SEE IMAGE
     Route: 048
     Dates: start: 20020825, end: 20040625
  2. FK506 (TACROLIMUS CAPSULES) [Suspect]
     Indication: RENAL AND PANCREAS TRANSPLANT
     Dosage: SEE IMAGE
     Route: 048
     Dates: start: 20040626
  3. FK506 (TACROLIMUS CAPSULES) [Suspect]
     Indication: RENAL AND PANCREAS TRANSPLANT
     Dosage: SEE IMAGE
     Route: 048
     Dates: start: 20050626
  4. RAPAMUNE [Suspect]
     Indication: RENAL AND PANCREAS TRANSPLANT
     Dosage: 8 MG, ORAL
     Route: 048
     Dates: start: 20020825, end: 20040625
  5. FURON (FUROSEMIDE) [Concomitant]
  6. ZAFOR (CHLORZOXAZONE) [Concomitant]

REACTIONS (2)
  - COMPLICATIONS OF TRANSPLANTED KIDNEY [None]
  - POLYOMAVIRUS-ASSOCIATED NEPHROPATHY [None]
